FAERS Safety Report 14797575 (Version 8)
Quarter: 2019Q2

REPORT INFORMATION
  Report Type: Spontaneous
  Country: DE (occurrence: DE)
  Receive Date: 20180424
  Receipt Date: 20190521
  Transmission Date: 20190711
  Serious: Yes (Other)
  Sender: FDA-Public Use
  Company Number: DE-ROCHE-2080919

PATIENT
  Age: 71 Year
  Sex: Male

DRUGS (5)
  1. ESBRIET [Suspect]
     Active Substance: PIRFENIDONE
     Indication: IDIOPATHIC PULMONARY FIBROSIS
     Route: 048
     Dates: start: 201705
  2. AMITRIPTYLINE [Concomitant]
     Active Substance: AMITRIPTYLINE
     Route: 065
  3. ESBRIET [Interacting]
     Active Substance: PIRFENIDONE
     Dosage: DOSE REDUCED (3X2 TABLETS PER DAY)
     Route: 065
  4. TRANXILIUM [Concomitant]
     Active Substance: CLORAZEPATE DIPOTASSIUM
     Route: 065
  5. AMITRIPTYLINE [Concomitant]
     Active Substance: AMITRIPTYLINE
     Route: 065

REACTIONS (19)
  - Skin exfoliation [Recovering/Resolving]
  - Nausea [Recovering/Resolving]
  - Dyspepsia [Not Recovered/Not Resolved]
  - Taste disorder [Unknown]
  - Listless [Unknown]
  - Drug interaction [Unknown]
  - Myalgia [Recovering/Resolving]
  - Rheumatoid factor increased [Not Recovered/Not Resolved]
  - Incorrect dose administered [Unknown]
  - Decreased appetite [Not Recovered/Not Resolved]
  - Arthralgia [Not Recovered/Not Resolved]
  - Inflammation [Not Recovered/Not Resolved]
  - Photosensitivity reaction [Unknown]
  - Gastric disorder [Not Recovered/Not Resolved]
  - Cystitis interstitial [Not Recovered/Not Resolved]
  - Asthenia [Not Recovered/Not Resolved]
  - Diarrhoea [Not Recovered/Not Resolved]
  - Liver injury [Unknown]
  - Weight decreased [Unknown]

NARRATIVE: CASE EVENT DATE: 201705
